FAERS Safety Report 4279955-4 (Version None)
Quarter: 2004Q1

REPORT INFORMATION
  Report Type: 
  Country: None (occurrence: None)
  Receive Date: 20040126
  Receipt Date: 20040114
  Transmission Date: 20041129
  Serious: Yes (Hospitalization)
  Sender: FDA-Public Use
  Company Number: 863#3#2004-00002

PATIENT
  Age: 74 Year
  Sex: Female

DRUGS (10)
  1. IDROLAX (MACROGOL) [Suspect]
     Indication: CONSTIPATION
     Dosage: 2 SACHETS ORAL
     Route: 048
     Dates: start: 20031114
  2. MEPRONIZINE (ACEPROMETAZINE, MEPROBAMATE) [Concomitant]
  3. DEBRIDAT (TRIMEBUTINE MALEATE) [Concomitant]
  4. EDUCTYL (POTASSIUM BITARTRATE, SODIUM BICARBONATE) [Concomitant]
  5. FRAGMIN [Concomitant]
  6. VALIUM [Concomitant]
  7. HYPERIUM (RILMENIDINE) [Concomitant]
  8. PAROXETINE HCL [Concomitant]
  9. LEXOMIL (BROMAZEPAM) [Concomitant]
  10. NOROXIN [Concomitant]

REACTIONS (4)
  - CUTANEOUS VASCULITIS [None]
  - PEMPHIGOID [None]
  - RASH [None]
  - TOXIC SKIN ERUPTION [None]
